FAERS Safety Report 21074518 (Version 1)
Quarter: 2022Q3

REPORT INFORMATION
  Report Type: Spontaneous
  Country: PT (occurrence: PT)
  Receive Date: 20220713
  Receipt Date: 20220713
  Transmission Date: 20221027
  Serious: Yes (Other)
  Sender: FDA-Public Use
  Company Number: PT-009507513-2206PRT009001

PATIENT
  Age: 46 Year
  Sex: Male

DRUGS (1)
  1. PEMBROLIZUMAB [Suspect]
     Active Substance: PEMBROLIZUMAB
     Indication: Non-small cell lung cancer stage IV
     Dosage: 200 MILLIGRAM, Q3W
     Dates: start: 20170623, end: 201909

REACTIONS (4)
  - Pneumonia [Recovered/Resolved]
  - Immune-mediated lung disease [Recovered/Resolved]
  - Toxicity to various agents [Unknown]
  - Product use issue [Unknown]
